FAERS Safety Report 21755772 (Version 2)
Quarter: 2023Q1

REPORT INFORMATION
  Report Type: Spontaneous
  Country: ES (occurrence: ES)
  Receive Date: 20221220
  Receipt Date: 20230125
  Transmission Date: 20230418
  Serious: Yes (Hospitalization, Other)
  Sender: FDA-Public Use
  Company Number: ES-THERAPEUTICSMD-2022TMD01124

PATIENT
  Age: 52 Year
  Sex: Female

DRUGS (1)
  1. BIJUVA [Suspect]
     Active Substance: ESTRADIOL\PROGESTERONE
     Indication: Menopause
     Dosage: UNK

REACTIONS (14)
  - Headache [Recovered/Resolved]
  - Headache [Recovered/Resolved]
  - Dizziness [Recovered/Resolved]
  - Cold sweat [Recovered/Resolved]
  - Chest pain [Recovered/Resolved]
  - Dysphagia [Recovered/Resolved]
  - Speech disorder [Recovered/Resolved]
  - Suffocation feeling [Recovered/Resolved]
  - Peripheral swelling [Recovered/Resolved]
  - Swelling face [Recovered/Resolved]
  - Abdominal pain upper [Recovered/Resolved]
  - Hepatic pain [Recovered/Resolved]
  - Hypoaesthesia [Recovered/Resolved]
  - Hypoaesthesia [Recovered/Resolved]
